FAERS Safety Report 7485558-0 (Version None)
Quarter: 2011Q2

REPORT INFORMATION
  Report Type: 
  Country: None (occurrence: None)
  Receive Date: 20110517
  Receipt Date: 20110511
  Transmission Date: 20111010
  Serious: Yes (Death, Hospitalization)
  Sender: FDA-Public Use
  Company Number: US-PFIZER INC-A201827

PATIENT
  Sex: Female
  Weight: 119.29 kg

DRUGS (10)
  1. PREDNISONE TAB [Concomitant]
     Dates: start: 19981010
  2. APAP TAB [Concomitant]
     Dates: start: 19980702
  3. CARDIZEM [Suspect]
     Indication: ILL-DEFINED DISORDER
     Dosage: DAILY
     Route: 065
     Dates: start: 19980702
  4. ZESTORETIC [Suspect]
     Indication: ILL-DEFINED DISORDER
     Dosage: DAILY
     Dates: start: 19980725, end: 19981010
  5. SYNTHROID [Concomitant]
  6. PERCOCET [Concomitant]
  7. CARDURA [Concomitant]
     Dates: start: 19980702
  8. INSULIN [Concomitant]
  9. TROGLITAZONE [Suspect]
     Indication: TYPE 2 DIABETES MELLITUS
     Dosage: DAILY
     Route: 048
     Dates: start: 19980917, end: 19981002
  10. GLUCOTROL XL [Suspect]
     Indication: TYPE 2 DIABETES MELLITUS
     Dosage: BID
     Dates: start: 19980917, end: 19981027

REACTIONS (7)
  - SEPSIS [None]
  - LIVER DISORDER [None]
  - RENAL FAILURE [None]
  - RASH [None]
  - DRUG HYPERSENSITIVITY [None]
  - DERMATITIS EXFOLIATIVE [None]
  - CARDIAC FAILURE CONGESTIVE [None]
